FAERS Safety Report 13286814 (Version 3)
Quarter: 2018Q2

REPORT INFORMATION
  Report Type: Report from Study
  Country: US (occurrence: US)
  Receive Date: 20170302
  Receipt Date: 20180501
  Transmission Date: 20180711
  Serious: Yes (Other)
  Sender: FDA-Public Use
  Company Number: US-ASTRAZENECA-2017SE12663

PATIENT
  Sex: Female

DRUGS (4)
  1. LYNPARZA [Suspect]
     Active Substance: OLAPARIB
     Indication: OVARIAN CANCER
     Route: 048
     Dates: start: 20170412
  2. LYNPARZA [Suspect]
     Active Substance: OLAPARIB
     Indication: OVARIAN CANCER
     Route: 048
     Dates: start: 20170123, end: 20170222
  3. LOW DOSE ASPIRIN [Concomitant]
     Active Substance: ASPIRIN
  4. LYNPARZA [Suspect]
     Active Substance: OLAPARIB
     Indication: OVARIAN CANCER
     Route: 048
     Dates: start: 20170322

REACTIONS (5)
  - Vomiting [Recovering/Resolving]
  - Somnolence [Recovering/Resolving]
  - Renal injury [Recovering/Resolving]
  - Therapy cessation [Unknown]
  - Nausea [Not Recovered/Not Resolved]
